FAERS Safety Report 8786433 (Version 1)
Quarter: 2012Q4

REPORT INFORMATION
  Report Type: 
  Country: US (occurrence: US)
  Receive Date: 20120914
  Receipt Date: 20120914
  Transmission Date: 20130627
  Serious: Yes (Disabling)
  Sender: FDA-Public Use
  Company Number: US-PFIZER INC-2012226012

PATIENT
  Age: 64 Year
  Sex: Male
  Weight: 104 kg

DRUGS (4)
  1. PROCARDIA XL [Suspect]
     Indication: BLOOD PRESSURE ABNORMAL
     Dosage: 60 mg, daily
  2. CARDURA [Suspect]
     Indication: PROSTATIC DISORDER
     Dosage: 4 mg, daily
  3. AVODART [Concomitant]
     Indication: PROSTATIC DISORDER
     Dosage: 0.5 mg, daily
     Dates: start: 2011
  4. LISINOPRIL [Concomitant]
     Indication: BLOOD PRESSURE ABNORMAL
     Dosage: UNK, daily

REACTIONS (1)
  - Hepatitis C [Not Recovered/Not Resolved]
